FAERS Safety Report 7435995-5 (Version None)
Quarter: 2011Q2

REPORT INFORMATION
  Report Type: 
  Country: None (occurrence: None)
  Receive Date: 20110425
  Receipt Date: 20110422
  Transmission Date: 20111010
  Serious: Yes (Other)
  Sender: FDA-Public Use
  Company Number: JP-PFIZER INC-2011088188

PATIENT
  Age: 36 Year
  Sex: Female

DRUGS (5)
  1. MUCODYNE [Concomitant]
  2. ETHYL LOFLAZEPATE [Concomitant]
  3. ZOLOFT [Suspect]
     Dosage: 25 MG/DAY
     Route: 048
     Dates: start: 20110415
  4. LAC B [Concomitant]
  5. ASTOMIN [Concomitant]

REACTIONS (1)
  - HYPOACUSIS [None]
